FAERS Safety Report 8871856 (Version 1)
Quarter: 2012Q4

REPORT INFORMATION
  Report Type: 
  Country: US (occurrence: US)
  Receive Date: 20121023
  Receipt Date: 20121023
  Transmission Date: 20130627
  Serious: No
  Sender: FDA-Public Use
  Company Number: US-ASTELLAS-2012US007101

PATIENT
  Sex: Female
  Weight: 41 kg

DRUGS (2)
  1. PROGRAF [Suspect]
     Indication: RENAL TRANSPLANT
     Dosage: 4.5 mg, bid
     Route: 048
     Dates: start: 20120121
  2. CELLCEPT                           /01275102/ [Concomitant]
     Indication: RENAL TRANSPLANT
     Dosage: 2.5 mg, bid
     Route: 048
     Dates: start: 20120121

REACTIONS (3)
  - Alopecia [Unknown]
  - Hyperhidrosis [Unknown]
  - Tremor [Unknown]
